FAERS Safety Report 23388127 (Version 1)
Quarter: 2024Q1

REPORT INFORMATION
  Report Type: Spontaneous
  Country: US (occurrence: None)
  Receive Date: 20240110
  Receipt Date: 20240110
  Transmission Date: 20240410
  Serious: Yes (Death)
  Sender: FDA-Public Use
  Company Number: None

PATIENT
  Age: 68 Year
  Sex: Male
  Weight: 64.35 kg

DRUGS (10)
  1. THALOMID [Suspect]
     Active Substance: THALIDOMIDE
     Indication: Myelodysplastic syndrome
     Dosage: FREQUENCY : DAILY;?
     Route: 048
     Dates: start: 20231219, end: 20231229
  2. FUROSEMIDE [Concomitant]
     Active Substance: FUROSEMIDE
  3. potassium chloride ER 10 mEq tablet,extended release [Concomitant]
  4. ACYCLOVIR [Concomitant]
     Active Substance: ACYCLOVIR
  5. Vitamin B-12 250 mcg tablet [Concomitant]
  6. Vitamin D3 25 mcg (1,000 unit) tablet [Concomitant]
  7. lidocaine 1.8 % topical patch [Concomitant]
  8. FLUCONAZOLE [Concomitant]
     Active Substance: FLUCONAZOLE
  9. PREDNISONE [Concomitant]
     Active Substance: PREDNISONE
  10. tramadol 50 mg tablet [Concomitant]

REACTIONS (1)
  - Death [None]

NARRATIVE: CASE EVENT DATE: 20231229
